FAERS Safety Report 9600668 (Version 2)
Quarter: 2014Q1

REPORT INFORMATION
  Report Type: Spontaneous
  Country: US (occurrence: US)
  Receive Date: 20131004
  Receipt Date: 20140304
  Transmission Date: 20141002
  Serious: No
  Sender: FDA-Public Use
  Company Number: US-AMGEN-USASP2013036416

PATIENT
  Age: 53 Year
  Sex: Female
  Weight: 99.77 kg

DRUGS (8)
  1. ENBREL [Suspect]
     Indication: PRODUCT USED FOR UNKNOWN INDICATION
     Dosage: 50 MG, QWK
     Route: 058
  2. METHOTREXATE [Concomitant]
     Dosage: 2.5 MG, UNK
  3. OMEPRAZOLE [Concomitant]
     Dosage: 10 MG, UNK
  4. CYMBALTA [Concomitant]
     Dosage: 20 MG, UNK
  5. METFORMIN [Concomitant]
     Dosage: 1000 MG, UNK
  6. FOLIC ACID [Concomitant]
     Dosage: 1 MG, UNK
  7. TRAZODONE [Concomitant]
     Dosage: 100 MG, UNK
  8. GABAPENTIN [Concomitant]
     Dosage: 100 MG, UNK

REACTIONS (7)
  - Fatigue [Unknown]
  - Rheumatoid arthritis [Unknown]
  - Chronic sinusitis [Unknown]
  - Injection site erythema [Unknown]
  - Injection site pruritus [Unknown]
  - Injection site swelling [Unknown]
  - Localised infection [Unknown]
